FAERS Safety Report 22629096 (Version 1)
Quarter: 2023Q2

REPORT INFORMATION
  Report Type: Spontaneous
  Country: PT (occurrence: PT)
  Receive Date: 20230622
  Receipt Date: 20230622
  Transmission Date: 20230721
  Serious: Yes (Other)
  Sender: FDA-Public Use
  Company Number: PT-AUROBINDO-AUR-APL-2023-041557

PATIENT
  Age: 57 Year
  Sex: Male

DRUGS (1)
  1. AZITHROMYCIN [Suspect]
     Active Substance: AZITHROMYCIN
     Indication: COVID-19
     Dosage: UNK
     Route: 065

REACTIONS (6)
  - Liver injury [Unknown]
  - Steatohepatitis [Unknown]
  - Hyperbilirubinaemia [Recovering/Resolving]
  - Hepatic function abnormal [Recovering/Resolving]
  - Condition aggravated [Unknown]
  - Off label use [Unknown]
